FAERS Safety Report 7677029-3 (Version None)
Quarter: 2011Q3

REPORT INFORMATION
  Report Type: 
  Country: None (occurrence: None)
  Receive Date: 20110811
  Receipt Date: 20110802
  Transmission Date: 20111222
  Serious: Yes (Hospitalization)
  Sender: FDA-Public Use
  Company Number: AT-ROCHE-783343

PATIENT
  Sex: Female
  Weight: 67 kg

DRUGS (3)
  1. PEGINTERFERON ALFA-2A [Suspect]
     Indication: HEPATITIS C
     Route: 058
     Dates: start: 20110407
  2. BLINDED TMC435 [Suspect]
     Indication: HEPATITIS C
     Dosage: FREQUENCY: EVERYDAY
     Route: 048
     Dates: start: 20110407, end: 20110629
  3. RIBAVIRIN [Suspect]
     Indication: HEPATITIS C
     Dosage: 400 MG MORNIG DOSE AND 600 MG EVENING DOSE.
     Route: 048
     Dates: start: 20110407

REACTIONS (1)
  - HYPOTENSION [None]
